FAERS Safety Report 20920646 (Version 2)
Quarter: 2022Q2

REPORT INFORMATION
  Report Type: Report from Study
  Country: FR (occurrence: None)
  Receive Date: 20220606
  Receipt Date: 20220616
  Transmission Date: 20220721
  Serious: Yes (Hospitalization)
  Sender: FDA-Public Use
  Company Number: FR-ROCHE-3108563

PATIENT
  Age: 43 Year
  Sex: Male

DRUGS (22)
  1. ATEZOLIZUMAB [Suspect]
     Active Substance: ATEZOLIZUMAB
     Indication: Non-small cell lung cancer metastatic
     Route: 041
     Dates: start: 20210426
  2. BEVACIZUMAB [Suspect]
     Active Substance: BEVACIZUMAB
     Indication: Non-small cell lung cancer metastatic
     Route: 042
     Dates: start: 20210426
  3. DOCETAXEL [Suspect]
     Active Substance: DOCETAXEL
     Indication: Non-small cell lung cancer metastatic
     Route: 042
     Dates: start: 20220111
  4. RABEPRAZOLE SODIUM [Concomitant]
     Active Substance: RABEPRAZOLE SODIUM
     Route: 048
  5. IRBESARTAN [Concomitant]
     Active Substance: IRBESARTAN
     Indication: Hypertension
     Route: 065
  6. DAFALGAN [Concomitant]
     Active Substance: ACETAMINOPHEN
     Indication: Cough
     Dosage: YES
     Route: 065
     Dates: start: 20210426
  7. NAPROXEN [Concomitant]
     Active Substance: NAPROXEN
     Route: 048
     Dates: start: 20210920
  8. OXYCONTIN [Concomitant]
     Active Substance: OXYCODONE HYDROCHLORIDE
     Indication: Abdominal pain
     Route: 048
     Dates: start: 20220111
  9. PRIMPERAN [Concomitant]
     Active Substance: METOCLOPRAMIDE HYDROCHLORIDE
     Dosage: GIVEN FOR PROPHYLAXIS IS YES
     Route: 065
     Dates: start: 20220111
  10. EMEND [Concomitant]
     Active Substance: APREPITANT
     Dosage: GIVEN FOR PROPHYLAXIS IS YES
     Route: 065
     Dates: start: 20220111
  11. ONDANSETRON [Concomitant]
     Active Substance: ONDANSETRON
     Dosage: GIVEN FOR PROPHYLAXIS IS YES
     Route: 065
     Dates: start: 20220111
  12. POLYETHYLENE GLYCOL 4000 [Concomitant]
     Active Substance: POLYETHYLENE GLYCOL 4000
     Dosage: GIVEN FOR PROPHYLAXIS IS YES
     Route: 065
     Dates: start: 20220111
  13. EMLA [Concomitant]
     Active Substance: LIDOCAINE\PRILOCAINE
     Dosage: GIVEN FOR PROPHYLAXIS IS YES
     Route: 065
     Dates: start: 20220111
  14. XANAX [Concomitant]
     Active Substance: ALPRAZOLAM
     Indication: Sleep disorder
     Dosage: GIVEN FOR PROPHYLAXIS IS YES
     Route: 065
     Dates: start: 20220111
  15. XANAX [Concomitant]
     Active Substance: ALPRAZOLAM
     Route: 048
     Dates: start: 20220318
  16. GRANULOCYTE COLONY-STIMULATING FACTOR NOS [Concomitant]
     Active Substance: GRANULOCYTE COLONY-STIMULATING FACTOR NOS
     Indication: Enteritis
     Route: 065
     Dates: start: 20220120
  17. PEGFILGRASTIM [Concomitant]
     Active Substance: PEGFILGRASTIM
     Indication: Enteritis
     Route: 065
     Dates: start: 20220120
  18. PULMICORT TURBUHALER [Concomitant]
     Active Substance: BUDESONIDE
     Indication: Cough
     Route: 048
     Dates: start: 20220120
  19. SOLU-MEDROL [Concomitant]
     Active Substance: METHYLPREDNISOLONE SODIUM SUCCINATE
     Route: 042
     Dates: start: 20220111
  20. ONDANSETRON [Concomitant]
     Active Substance: ONDANSETRON
     Dosage: AT EACH CYCLE
     Route: 042
     Dates: start: 20220111
  21. OXYCODONE HYDROCHLORIDE [Concomitant]
     Active Substance: OXYCODONE HYDROCHLORIDE
     Indication: Pain
     Route: 048
     Dates: start: 20220328
  22. GABAPENTIN [Concomitant]
     Active Substance: GABAPENTIN
     Indication: Pain
     Route: 048
     Dates: start: 20220320

REACTIONS (1)
  - External compression headache [Not Recovered/Not Resolved]

NARRATIVE: CASE EVENT DATE: 20220528
